FAERS Safety Report 19228861 (Version 1)
Quarter: 2021Q2

REPORT INFORMATION
  Report Type: Spontaneous
  Country: US (occurrence: US)
  Receive Date: 20210507
  Receipt Date: 20210507
  Transmission Date: 20210717
  Serious: Yes (Hospitalization)
  Sender: FDA-Public Use
  Company Number: US-ORGANON-O2105USA000091

PATIENT
  Sex: Male
  Weight: 70.3 kg

DRUGS (5)
  1. LEXAPRO [Concomitant]
     Active Substance: ESCITALOPRAM OXALATE
     Indication: ANXIETY
     Dosage: UNK
  2. LEXAPRO [Concomitant]
     Active Substance: ESCITALOPRAM OXALATE
     Indication: DEPRESSION
  3. SINEMET [Suspect]
     Active Substance: CARBIDOPA\LEVODOPA
     Indication: PARKINSON^S DISEASE
     Dosage: UNK
     Route: 048
  4. DUOPA [Suspect]
     Active Substance: CARBIDOPA\LEVODOPA
     Indication: PARKINSON^S DISEASE
     Dosage: UNK
     Dates: start: 20191206, end: 20210410
  5. DUOPA [Suspect]
     Active Substance: CARBIDOPA\LEVODOPA
     Dosage: RECENTLY USED 2 CASSETTES OVER 21 HOURS
     Dates: start: 2019, end: 202104

REACTIONS (10)
  - Anxiety [Recovering/Resolving]
  - Hypophagia [Recovering/Resolving]
  - Fluid intake reduced [Recovered/Resolved with Sequelae]
  - Panic attack [Unknown]
  - Overdose [Unknown]
  - Dehydration [Recovered/Resolved]
  - Dizziness [Recovered/Resolved]
  - Drug effect less than expected [Unknown]
  - Mobility decreased [Unknown]
  - Confusional state [Recovered/Resolved]

NARRATIVE: CASE EVENT DATE: 2021
